FAERS Safety Report 19739226 (Version 1)
Quarter: 2021Q3

REPORT INFORMATION
  Report Type: Spontaneous
  Country: IN (occurrence: IN)
  Receive Date: 20210824
  Receipt Date: 20210824
  Transmission Date: 20211014
  Serious: Yes (Death, Other)
  Sender: FDA-Public Use
  Company Number: IN-PFIZER INC-2020074099

PATIENT
  Age: 61 Year
  Sex: Female

DRUGS (7)
  1. DOLONEURON 100 [Concomitant]
     Dosage: UNK UNK, 1X/DAY
  2. CALBIS CZ [Concomitant]
     Dosage: UNK, DAILY
  3. THYROX [Concomitant]
     Dosage: 50 UG, 1X/DAY
  4. PALBACE [Suspect]
     Active Substance: PALBOCICLIB
     Indication: BREAST CANCER METASTATIC
     Dosage: 125 MG, 1X/DAY
     Route: 048
     Dates: start: 20190207
  5. LETROZOLE. [Concomitant]
     Active Substance: LETROZOLE
     Dosage: 2.5 MG, 1X/DAY
  6. PALBACE [Suspect]
     Active Substance: PALBOCICLIB
     Dosage: 125 MG, 1X/DAY ? 3 WEEKS
     Route: 048
     Dates: start: 20200118, end: 20200207
  7. PROZOL [METRONIDAZOLE] [Concomitant]
     Dosage: 40 MG, 1X/DAY

REACTIONS (3)
  - Mastication disorder [Unknown]
  - Hypotension [Unknown]
  - Death [Fatal]

NARRATIVE: CASE EVENT DATE: 20200427
